FAERS Safety Report 19951877 (Version 1)
Quarter: 2021Q4

REPORT INFORMATION
  Report Type: Spontaneous
  Country: FR (occurrence: FR)
  Receive Date: 20211013
  Receipt Date: 20211013
  Transmission Date: 20220303
  Serious: No
  Sender: FDA-Public Use
  Company Number: FR-GW PHARMA-202110FRGW04857

PATIENT

DRUGS (2)
  1. CANNABIDIOL [Suspect]
     Active Substance: CANNABIDIOL
     Indication: Product used for unknown indication
     Dosage: 20 MILLIGRAM/KILOGRAM, QD
     Route: 048
     Dates: start: 201905
  2. CANNABIDIOL [Suspect]
     Active Substance: CANNABIDIOL
     Dosage: 14 MILLIGRAM/KILOGRAM, QD
     Route: 048

REACTIONS (2)
  - Dermatitis diaper [Not Recovered/Not Resolved]
  - Pain [Not Recovered/Not Resolved]

NARRATIVE: CASE EVENT DATE: 20200901
